FAERS Safety Report 13766679 (Version 1)
Quarter: 2017Q3

REPORT INFORMATION
  Report Type: Spontaneous
  Country: US (occurrence: US)
  Receive Date: 20170718
  Receipt Date: 20170718
  Transmission Date: 20171127
  Serious: Yes (Life-Threatening, Hospitalization, Disabling, Other)
  Sender: FDA-Public Use
  Company Number: None

PATIENT
  Age: 85 Year
  Sex: Male
  Weight: 81 kg

DRUGS (14)
  1. LAMOTRIGINE. [Concomitant]
     Active Substance: LAMOTRIGINE
  2. INVANZ [Suspect]
     Active Substance: ERTAPENEM SODIUM
     Indication: URINARY TRACT INFECTION
     Route: 042
     Dates: start: 20170713, end: 20170716
  3. APIXABAN [Concomitant]
     Active Substance: APIXABAN
  4. VITAMIN B [Concomitant]
     Active Substance: VITAMIN B
  5. FINASTERIDE. [Concomitant]
     Active Substance: FINASTERIDE
  6. AMLODIPINE [Concomitant]
     Active Substance: AMLODIPINE BESYLATE
  7. POTASSIUM CHLORIDE. [Concomitant]
     Active Substance: POTASSIUM CHLORIDE
  8. CARVEDILOL. [Concomitant]
     Active Substance: CARVEDILOL
  9. TRAVATAN [Concomitant]
     Active Substance: TRAVOPROST
  10. LOSARTAN. [Concomitant]
     Active Substance: LOSARTAN
  11. INSPRA [Concomitant]
     Active Substance: EPLERENONE
  12. SEROQUEL [Concomitant]
     Active Substance: QUETIAPINE FUMARATE
  13. VITAMIN D [Concomitant]
     Active Substance: CHOLECALCIFEROL
  14. LORATADINE. [Concomitant]
     Active Substance: LORATADINE

REACTIONS (3)
  - Fall [None]
  - Generalised tonic-clonic seizure [None]
  - Spinal fracture [None]

NARRATIVE: CASE EVENT DATE: 20170716
